FAERS Safety Report 7657811-9 (Version None)
Quarter: 2011Q3

REPORT INFORMATION
  Report Type: 
  Country: None (occurrence: None)
  Receive Date: 20110805
  Receipt Date: 20090819
  Transmission Date: 20111222
  Serious: No
  Sender: FDA-Public Use
  Company Number: US-BIOGENIDEC-2009BI026476

PATIENT
  Age: 25 Year
  Sex: Female

DRUGS (3)
  1. TYSABRI [Suspect]
     Route: 042
     Dates: start: 20101203, end: 20110523
  2. REBIF [Concomitant]
     Indication: MULTIPLE SCLEROSIS
     Dates: start: 20100601
  3. TYSABRI [Suspect]
     Indication: MULTIPLE SCLEROSIS
     Route: 042
     Dates: start: 20090529, end: 20100428

REACTIONS (6)
  - NAUSEA [None]
  - MEMORY IMPAIRMENT [None]
  - PRURITUS [None]
  - ALOPECIA [None]
  - INFLUENZA LIKE ILLNESS [None]
  - RASH VESICULAR [None]
